FAERS Safety Report 8313591-5 (Version None)
Quarter: 2012Q2

REPORT INFORMATION
  Report Type: 
  Country: None (occurrence: None)
  Receive Date: 20120426
  Receipt Date: 20120417
  Transmission Date: 20120825
  Serious: Yes (Hospitalization)
  Sender: FDA-Public Use
  Company Number: US-AMGEN-USASP2012024556

PATIENT
  Age: 71 Year
  Sex: Female

DRUGS (11)
  1. NEXIUM                             /01479303/ [Concomitant]
     Dosage: UNK
  2. COUMADIN [Concomitant]
     Dosage: UNK
  3. FISH OIL [Concomitant]
     Dosage: UNK
  4. ENBREL [Suspect]
     Indication: PRODUCT USED FOR UNKNOWN INDICATION
     Dosage: 50 MG, QWK
     Dates: start: 20100501
  5. LEVOXYL [Concomitant]
     Dosage: UNK
  6. VITAMIN C                          /00008001/ [Concomitant]
     Dosage: UNK
  7. B COMPLEX WITH C [Concomitant]
     Dosage: UNK
  8. LIVALO [Concomitant]
     Dosage: UNK
  9. MULTI-VITAMINS [Concomitant]
     Dosage: UNK
  10. VITAMIN D [Concomitant]
     Dosage: UNK
  11. COENZYME Q10 [Concomitant]
     Dosage: UNK

REACTIONS (2)
  - FALL [None]
  - THORACIC VERTEBRAL FRACTURE [None]
